FAERS Safety Report 4269645-6 (Version None)
Quarter: 2004Q1

REPORT INFORMATION
  Report Type: 
  Country: None (occurrence: None)
  Receive Date: 20040109
  Receipt Date: 20031227
  Transmission Date: 20041129
  Serious: Yes (Other)
  Sender: FDA-Public Use
  Company Number: 2003040743

PATIENT
  Age: 73 Year
  Sex: Female
  Weight: 79.8331 kg

DRUGS (4)
  1. LIPITOR [Suspect]
     Indication: DYSLIPIDAEMIA
     Dosage: 20 MG (DAILY), ORAL
     Route: 048
     Dates: start: 19990601
  2. CELECOXIB (CELECOXIB) [Concomitant]
     Indication: SPINAL COLUMN STENOSIS
     Dosage: 200 MG (BID), ORAL
     Route: 048
     Dates: start: 19990827
  3. METOPROLOL SUCCINATE [Concomitant]
  4. ALLERGA-D (PSEUDOEPHEDRINE HYDROCHLORIDE, FEXOFENADINE) [Concomitant]

REACTIONS (3)
  - ACUTE MYOCARDIAL INFARCTION [None]
  - ELECTROCARDIOGRAM Q WAVE ABNORMAL [None]
  - PAIN [None]
